FAERS Safety Report 8224051-4 (Version None)
Quarter: 2012Q1

REPORT INFORMATION
  Report Type: 
  Country: None (occurrence: None)
  Receive Date: 20120321
  Receipt Date: 20120316
  Transmission Date: 20120608
  Serious: Yes (Death, Hospitalization, Other)
  Sender: FDA-Public Use
  Company Number: PHHY2012ES023204

PATIENT
  Age: 66 Year
  Sex: Male

DRUGS (3)
  1. FENTANYL-100 [Suspect]
     Indication: PAIN
     Dosage: 12 UG/72HR
     Route: 058
     Dates: start: 20101101
  2. GLEEVEC [Suspect]
     Indication: GASTROINTESTINAL STROMAL TUMOUR
     Dosage: 400 MG, DAILY
     Route: 048
     Dates: start: 20100901, end: 20101101
  3. GLEEVEC [Suspect]
     Dosage: 800 MG, DAILY
     Route: 048
     Dates: start: 20101101, end: 20101101

REACTIONS (7)
  - NEOPLASM MALIGNANT [None]
  - URINARY TRACT INFECTION [None]
  - HEPATIC FAILURE [None]
  - CONSTIPATION [None]
  - DEATH [None]
  - NEOPLASM PROGRESSION [None]
  - HEPATIC ENCEPHALOPATHY [None]
